FAERS Safety Report 21136973 (Version 1)
Quarter: 2022Q3

REPORT INFORMATION
  Report Type: Spontaneous
  Country: US (occurrence: None)
  Receive Date: 20220726
  Receipt Date: 20220726
  Transmission Date: 20221027
  Serious: Yes (Disabling)
  Sender: FDA-Public Use
  Company Number: None

PATIENT
  Age: 31 Year
  Sex: Female
  Weight: 47.25 kg

DRUGS (1)
  1. CLOBETASOL PROPIONATE [Suspect]
     Active Substance: CLOBETASOL PROPIONATE
     Indication: Dermatitis atopic
     Dosage: OTHER QUANTITY : 60 GRAMS;?FREQUENCY : TWICE A DAY;?
     Route: 061
     Dates: start: 20200806, end: 20220110

REACTIONS (21)
  - Insomnia [None]
  - Neuralgia [None]
  - Alopecia [None]
  - Condition aggravated [None]
  - Topical steroid withdrawal reaction [None]
  - Skin weeping [None]
  - Skin burning sensation [None]
  - Blister [None]
  - Photosensitivity reaction [None]
  - Hyperhidrosis [None]
  - Skin exfoliation [None]
  - Swelling face [None]
  - Erythema [None]
  - Dry skin [None]
  - Pain of skin [None]
  - Erythema [None]
  - Pruritus [None]
  - Skin fissures [None]
  - Scab [None]
  - Skin atrophy [None]
  - Sensitive skin [None]

NARRATIVE: CASE EVENT DATE: 20220111
